FAERS Safety Report 5988228-0 (Version None)
Quarter: 2008Q4

REPORT INFORMATION
  Report Type: 
  Country: None (occurrence: None)
  Receive Date: 20081204
  Receipt Date: 20081120
  Transmission Date: 20090506
  Serious: Yes (Hospitalization)
  Sender: FDA-Public Use
  Company Number: KV200800429

PATIENT
  Age: 44 Year
  Sex: Female

DRUGS (3)
  1. MORPHINE SULFATE [Suspect]
     Indication: ABDOMINAL OPERATION
     Dosage: 60 MG, BID, PRN, ORAL
     Route: 048
     Dates: start: 20080901, end: 20081101
  2. MORPHINE SULFATE [Suspect]
     Indication: PROCEDURAL PAIN
     Dosage: 60 MG, BID, PRN, ORAL
     Route: 048
     Dates: start: 20080901, end: 20081101
  3. LISINOPRIL [Concomitant]

REACTIONS (9)
  - DECREASED APPETITE [None]
  - DIZZINESS [None]
  - DRUG EFFECT DECREASED [None]
  - ELECTROCARDIOGRAM ABNORMAL [None]
  - HEART RATE INCREASED [None]
  - HYPERHIDROSIS [None]
  - INSOMNIA [None]
  - NAUSEA [None]
  - PRODUCT QUALITY ISSUE [None]
